FAERS Safety Report 4974223-7 (Version None)
Quarter: 2006Q1

REPORT INFORMATION
  Report Type: 
  Country: None (occurrence: None)
  Receive Date: 20060227
  Receipt Date: 20051216
  Transmission Date: 20060701
  Serious: No
  Sender: FDA-Public Use
  Company Number: PHEH2005US13575

PATIENT
  Age: 87 Year
  Sex: Male

DRUGS (7)
  1. ENABLEX [Suspect]
     Indication: HYPERTONIC BLADDER
     Dosage: 7.5 MG, QD
     Dates: start: 20050601
  2. LOVASTATIN [Concomitant]
  3. NORVASC [Concomitant]
  4. DIOVAN [Concomitant]
  5. ALLOPURINOL [Concomitant]
  6. INDERAL LA [Concomitant]
  7. ASPIRIN [Concomitant]

REACTIONS (3)
  - CONSTIPATION [None]
  - DIZZINESS [None]
  - DRY MOUTH [None]
